FAERS Safety Report 25961423 (Version 5)
Quarter: 2025Q4

REPORT INFORMATION
  Report Type: Report from Study
  Country: US (occurrence: US)
  Receive Date: 20251027
  Receipt Date: 20251222
  Transmission Date: 20260118
  Serious: Yes (Hospitalization, Other)
  Sender: ACADIA PHARMACEUTICALS
  Company Number: US-ACADIA PHARMACEUTICALS INC.-ACA-2025-TRF-011491

PATIENT
  Age: 8 Year
  Sex: Female
  Weight: 24.49 kg

DRUGS (10)
  1. DAYBUE [Suspect]
     Active Substance: TROFINETIDE
     Indication: Rett syndrome
     Dosage: 35 MILLILITER, BID
     Dates: start: 20240408
  2. CLONIDINE [Concomitant]
     Active Substance: CLONIDINE
  3. FAMOTIDINE [Concomitant]
     Active Substance: FAMOTIDINE
  4. EPIDIOLEX [Concomitant]
     Active Substance: CANNABIDIOL
  5. CLOBAZAM [Concomitant]
     Active Substance: CLOBAZAM
  6. IPRATROPIUM BROMIDE [Concomitant]
     Active Substance: IPRATROPIUM BROMIDE
  7. KETAMINE [Concomitant]
     Active Substance: KETAMINE
  8. LEVETIRACETAM [Concomitant]
     Active Substance: LEVETIRACETAM
  9. PHENOBARBITAL [Concomitant]
     Active Substance: PHENOBARBITAL
  10. MIDAZOLAM [Concomitant]
     Active Substance: MIDAZOLAM

REACTIONS (3)
  - Pneumonia bacterial [Not Recovered/Not Resolved]
  - Rhinovirus infection [Unknown]
  - Underdose [Unknown]

NARRATIVE: CASE EVENT DATE: 20240408
